FAERS Safety Report 4862934-3 (Version None)
Quarter: 2005Q4

REPORT INFORMATION
  Report Type: 
  Country: None (occurrence: None)
  Receive Date: 20051221
  Receipt Date: 20051213
  Transmission Date: 20060501
  Serious: Yes (Life-Threatening)
  Sender: FDA-Public Use
  Company Number: JP-ABBOTT-05P-087-0319512-00

PATIENT
  Sex: Male

DRUGS (8)
  1. SEVOFLURANE [Suspect]
     Indication: ANAESTHESIA
     Route: 055
     Dates: start: 20050816, end: 20050816
  2. THIAMYLAL SODIUM [Concomitant]
     Indication: ANAESTHESIA
     Route: 042
     Dates: start: 20050816, end: 20050816
  3. VECURONIUM BROMIDE [Concomitant]
     Indication: ANAESTHESIA
     Route: 042
     Dates: start: 20050816, end: 20050816
  4. FENTANYL [Concomitant]
     Indication: ANAESTHESIA
     Route: 042
     Dates: start: 20050816, end: 20050816
  5. ATROPINE [Concomitant]
     Indication: ANAESTHESIA
     Route: 042
     Dates: start: 20050816, end: 20050816
  6. NEOSTIGMINE METILSULFATE [Concomitant]
     Indication: ANAESTHESIA
     Route: 042
     Dates: start: 20050816, end: 20050816
  7. OXYGEN [Concomitant]
     Indication: ANAESTHESIA
     Route: 042
     Dates: start: 20050816, end: 20050816
  8. NITROUS OXIDE W/ OXYGEN [Concomitant]
     Indication: ANAESTHESIA
     Route: 042
     Dates: start: 20050816, end: 20050816

REACTIONS (3)
  - CARDIAC ARREST [None]
  - HYPERKALAEMIA [None]
  - MYOGLOBINURIA [None]
